FAERS Safety Report 4506674-9 (Version None)
Quarter: 2004Q4

REPORT INFORMATION
  Report Type: 
  Country: None (occurrence: None)
  Receive Date: 20041117
  Receipt Date: 20041110
  Transmission Date: 20050328
  Serious: Yes (Hospitalization)
  Sender: FDA-Public Use
  Company Number: TAP2004Q01450

PATIENT
  Age: 62 Year
  Sex: Male

DRUGS (4)
  1. LUPRON DEPOT [Suspect]
     Indication: PROSTATE CANCER
     Dosage: 7.5 MG, 1 IN 1 M, INTRAMUSCULAR
     Route: 030
     Dates: start: 20040701
  2. FLUTAMIDE [Concomitant]
  3. COUMADIN [Concomitant]
  4. VASOTEC [Concomitant]

REACTIONS (1)
  - PERIPHERAL EMBOLISM [None]
